FAERS Safety Report 16944726 (Version 1)
Quarter: 2019Q4

REPORT INFORMATION
  Report Type: Spontaneous
  Country: US (occurrence: US)
  Receive Date: 20191022
  Receipt Date: 20191022
  Transmission Date: 20200122
  Serious: Yes (Other)
  Sender: FDA-Public Use
  Company Number: US-PFIZER INC-2019454325

PATIENT
  Age: 40 Year
  Sex: Male

DRUGS (19)
  1. VIAGRA [Suspect]
     Active Substance: SILDENAFIL CITRATE
     Dosage: 20 MG, (THREE PER WEEK)
     Dates: start: 20170525, end: 20171012
  2. CIALIS [Suspect]
     Active Substance: TADALAFIL
     Indication: ERECTILE DYSFUNCTION
     Dosage: 10 MG, (FIVE PER WEEK)
     Dates: start: 20120703, end: 20140224
  3. AMBIEN [Concomitant]
     Active Substance: ZOLPIDEM TARTRATE
     Indication: POST-TRAUMATIC STRESS DISORDER
     Dosage: UNK
     Dates: start: 2009, end: 201810
  4. TRAMADOL. [Concomitant]
     Active Substance: TRAMADOL
     Indication: FASCIITIS
     Dosage: UNK
     Dates: start: 2002
  5. PROTONIX [Concomitant]
     Active Substance: PANTOPRAZOLE SODIUM
     Indication: GASTROOESOPHAGEAL REFLUX DISEASE
     Dosage: UNK
     Dates: start: 2012
  6. WELLBUTRIN [Concomitant]
     Active Substance: BUPROPION HYDROCHLORIDE
     Indication: POST-TRAUMATIC STRESS DISORDER
     Dosage: UNK
     Dates: start: 2007
  7. CIALIS [Suspect]
     Active Substance: TADALAFIL
     Dosage: 20 MG, (FIVE PER WEEK)
     Dates: start: 20140915, end: 20161109
  8. PLAQUENIL [Concomitant]
     Active Substance: HYDROXYCHLOROQUINE SULFATE
     Indication: FIBROMYALGIA
  9. TRAMADOL. [Concomitant]
     Active Substance: TRAMADOL
     Indication: INTERVERTEBRAL DISC DEGENERATION
  10. PREDNISONE. [Concomitant]
     Active Substance: PREDNISONE
     Indication: FIBROMYALGIA
  11. FLOMAX [Concomitant]
     Active Substance: TAMSULOSIN HYDROCHLORIDE
     Dosage: 0.4 MG, DAILY
     Dates: start: 20160802, end: 2016
  12. VIAGRA [Suspect]
     Active Substance: SILDENAFIL CITRATE
     Dosage: 100 MG (THREE PER WEEK)
     Dates: start: 2018
  13. CIALIS [Suspect]
     Active Substance: TADALAFIL
     Dosage: 20 MG, (FIVE PER WEEK)
     Dates: start: 20130204, end: 20130819
  14. CIALIS [Suspect]
     Active Substance: TADALAFIL
     Dosage: 10 MG AND 20 MG (FIVE PER WEEK)
     Dates: start: 20131213, end: 20161029
  15. PREDNISONE. [Concomitant]
     Active Substance: PREDNISONE
     Indication: RHEUMATOID ARTHRITIS
     Dosage: UNK
     Dates: start: 2013
  16. AMBIEN [Concomitant]
     Active Substance: ZOLPIDEM TARTRATE
     Indication: INSOMNIA
  17. VIAGRA [Suspect]
     Active Substance: SILDENAFIL CITRATE
     Indication: ERECTILE DYSFUNCTION
     Dosage: 20 MG, (THREE PER WEEK)
     Dates: start: 20160428, end: 20180502
  18. CIALIS [Suspect]
     Active Substance: TADALAFIL
     Dosage: 10 MG, (FIVE PER WEEK)
     Dates: start: 20121028, end: 20130115
  19. PLAQUENIL [Concomitant]
     Active Substance: HYDROXYCHLOROQUINE SULFATE
     Indication: RHEUMATOID ARTHRITIS
     Dosage: UNK
     Dates: start: 2013

REACTIONS (1)
  - Malignant melanoma [Unknown]

NARRATIVE: CASE EVENT DATE: 201511
